FAERS Safety Report 17516594 (Version 1)
Quarter: 2020Q1

REPORT INFORMATION
  Report Type: Spontaneous
  Country: US (occurrence: US)
  Receive Date: 20200309
  Receipt Date: 20200309
  Transmission Date: 20200409
  Serious: Yes (Other)
  Sender: FDA-Public Use
  Company Number: US-VISTAPHARM, INC.-VER202002-000494

PATIENT
  Age: 54 Year
  Sex: Male

DRUGS (1)
  1. HYDROCODONE AND ACETAMINOPHEN [Suspect]
     Active Substance: ACETAMINOPHEN\HYDROCODONE
     Indication: RHINALGIA

REACTIONS (4)
  - Sinusitis [Unknown]
  - Wrong technique in product usage process [Unknown]
  - Soft tissue necrosis [Unknown]
  - Fungal infection [Unknown]
